FAERS Safety Report 4799483-7 (Version None)
Quarter: 2005Q4

REPORT INFORMATION
  Report Type: 
  Country: None (occurrence: None)
  Receive Date: 20051013
  Receipt Date: 20050929
  Transmission Date: 20060501
  Serious: Yes (Hospitalization)
  Sender: FDA-Public Use
  Company Number: 2005135534

PATIENT
  Age: 73 Year
  Sex: Female

DRUGS (16)
  1. CARDURA XL [Suspect]
     Indication: ILL-DEFINED DISORDER
     Dosage: UNK (UNKNOWN), ORAL
     Route: 048
  2. DICLOFENAC SODIUM [Suspect]
     Indication: ILL-DEFINED DISORDER
     Dosage: 100 MG (100 MG, DAILY) INTERVAL: EVERY DAY), ORAL
     Route: 048
  3. BUMETANIDE [Suspect]
     Indication: ILL-DEFINED DISORDER
     Dosage: 1.5 MG (1.5 MG, DAILY INTERVAL: EVERY DAY), ORAL
     Route: 048
  4. RAMIPRIL [Suspect]
     Indication: ILL-DEFINED DISORDER
     Dosage: 10 MG (10 MG, DAILY INTERVAL: EVERY DAY), ORAL
     Route: 048
  5. FLUCLOXACILLIN (FLUCLOXACILLIN) [Suspect]
     Indication: ILL-DEFINED DISORDER
     Dosage: 4 GRAM (1 GRAM, QID INTERVAL: EVERY DAY), ORAL
     Route: 048
     Dates: start: 20050722, end: 20050730
  6. FLUCLOXACILLIN (FLUCLOXACILLIN) [Suspect]
     Indication: ILL-DEFINED DISORDER
     Dosage: 4 GRAM (1 GRAM, QID INTERVAL: EVERY DAY), ORAL
     Route: 048
     Dates: start: 20050723, end: 20050730
  7. FUSIDATE SODIUM (FUSIDATE SODIUM) [Suspect]
     Indication: ILL-DEFINED DISORDER
     Dosage: 1500 MG (1500 MG, DAILY INTERVAL: EVERY DAY), ORAL
     Route: 048
     Dates: start: 20050723, end: 20050723
  8. DIGOXIN [Suspect]
     Indication: ILL-DEFINED DISORDER
     Dosage: 250 MCG (250 MCG, DAILY INTERVAL: EVERY DAY), UNKNOWN
     Route: 065
  9. WARFANT (WARFARIN SODIUM CLATHRATE) [Suspect]
     Indication: ILL-DEFINED DISORDER
     Dosage: 5 MG, ORAL
     Route: 048
  10. PROTIUM (PANTOPRAZOLE SODIUM) [Concomitant]
  11. LIPOSTAT (PRAVASTATIN SODIUM) [Concomitant]
  12. EMCOR (BISOPROLOL FUMARATE) [Concomitant]
  13. BISOPROLOL (BISOPROLOL) [Concomitant]
  14. MOTILIUM [Concomitant]
  15. ZOFRAN [Concomitant]
  16. PROCHLORPERAZINE [Concomitant]

REACTIONS (7)
  - ASPIRATION JOINT [None]
  - DRUG INTERACTION [None]
  - HAEMODIALYSIS [None]
  - INTERNATIONAL NORMALISED RATIO INCREASED [None]
  - RENAL IMPAIRMENT [None]
  - RENAL TUBULAR NECROSIS [None]
  - THERAPEUTIC AGENT TOXICITY [None]
